FAERS Safety Report 4918094-3 (Version None)
Quarter: 2006Q1

REPORT INFORMATION
  Report Type: 
  Country: None (occurrence: None)
  Receive Date: 20060221
  Receipt Date: 20051114
  Transmission Date: 20060701
  Serious: Yes (Death, Hospitalization)
  Sender: FDA-Public Use
  Company Number: US-MERCK-0511USA02569

PATIENT
  Age: 59 Year
  Sex: Female

DRUGS (1)
  1. VIOXX [Suspect]
     Route: 048

REACTIONS (29)
  - ABDOMINAL PAIN LOWER [None]
  - AZOTAEMIA [None]
  - CARDIAC FAILURE CONGESTIVE [None]
  - CEREBROVASCULAR ACCIDENT [None]
  - CONFUSIONAL STATE [None]
  - DEEP VEIN THROMBOSIS [None]
  - DEHYDRATION [None]
  - DIABETES MELLITUS NON-INSULIN-DEPENDENT [None]
  - DIARRHOEA [None]
  - FALL [None]
  - HEAD INJURY [None]
  - HYPERTENSION [None]
  - HYPOGLYCAEMIA [None]
  - HYPOTENSION [None]
  - JOINT INJURY [None]
  - MYOCARDIAL INFARCTION [None]
  - NAUSEA [None]
  - OBESITY [None]
  - PULMONARY EMBOLISM [None]
  - PYREXIA [None]
  - RENAL DISORDER [None]
  - RENAL FAILURE [None]
  - RENAL FAILURE ACUTE [None]
  - RESUSCITATION [None]
  - SLEEP APNOEA SYNDROME [None]
  - TACHYCARDIA [None]
  - THROMBOSIS [None]
  - URINARY TRACT INFECTION [None]
  - VOMITING [None]
